FAERS Safety Report 5948387-2 (Version None)
Quarter: 2008Q4

REPORT INFORMATION
  Report Type: 
  Country: None (occurrence: None)
  Receive Date: 20081111
  Receipt Date: 20081030
  Transmission Date: 20090506
  Serious: Yes (Other)
  Sender: FDA-Public Use
  Company Number: JP-ABBOTT-08P-087-0485892-00

PATIENT
  Age: 58 Year
  Sex: Female

DRUGS (6)
  1. CLARITHROMYCIN [Suspect]
     Indication: HELICOBACTER INFECTION
     Route: 048
     Dates: start: 20080619, end: 20080625
  2. LANSOPRAZOLE [Suspect]
     Indication: HELICOBACTER INFECTION
     Route: 048
     Dates: start: 20080619, end: 20080625
  3. AMOXICILLIN TRIHYDRATE [Suspect]
     Indication: HELICOBACTER INFECTION
     Route: 048
     Dates: start: 20080619, end: 20080625
  4. EPINASTINE HYDROCHLORIDE [Concomitant]
     Indication: RHINITIS ALLERGIC
     Route: 048
     Dates: start: 20080220
  5. EPINASTINE HYDROCHLORIDE [Concomitant]
     Indication: CONJUNCTIVITIS ALLERGIC
  6. ATORVASTATIN CALCIUM [Concomitant]
     Indication: DRUG USE FOR UNKNOWN INDICATION
     Route: 048
     Dates: start: 20080220

REACTIONS (5)
  - DIARRHOEA [None]
  - DRUG ERUPTION [None]
  - PHARYNGEAL OEDEMA [None]
  - STOMATITIS [None]
  - SWOLLEN TONGUE [None]
